FAERS Safety Report 9281188 (Version 1)
Quarter: 2013Q2

REPORT INFORMATION
  Report Type: Spontaneous
  Country: CO (occurrence: None)
  Receive Date: 20130502
  Receipt Date: 20130502
  Transmission Date: 20140414
  Serious: Yes (Other)
  Sender: FDA-Public Use
  Company Number: CO-JNJFOC-20130303716

PATIENT
  Age: 72 Year
  Sex: Female

DRUGS (1)
  1. DACOGEN (DECITABINE) LYOPHILIZED POWDER [Suspect]
     Indication: MYELODYSPLASTIC SYNDROME
     Dosage: STOPPED?
     Route: 042
     Dates: start: 20130225

REACTIONS (7)
  - Asthenia [None]
  - Epistaxis [None]
  - Haemoglobin decreased [None]
  - Platelet count decreased [None]
  - Gastrointestinal haemorrhage [None]
  - Diverticulitis [None]
  - Mucosal inflammation [None]
